FAERS Safety Report 10778289 (Version 2)
Quarter: 2015Q3

REPORT INFORMATION
  Report Type: Spontaneous
  Country: US (occurrence: US)
  Receive Date: 20150209
  Receipt Date: 20150805
  Transmission Date: 20151125
  Serious: No
  Sender: FDA-Public Use
  Company Number: US-AMGEN-USASP2014067223

PATIENT
  Age: 71 Year
  Sex: Female
  Weight: 98.87 kg

DRUGS (2)
  1. NPLATE [Suspect]
     Active Substance: ROMIPLOSTIM
     Indication: IMMUNE THROMBOCYTOPENIC PURPURA
     Dosage: 1 MUG/KG, QWK
     Route: 058
     Dates: start: 20130604
  2. DIAZIDE                            /00007602/ [Concomitant]
     Indication: HYPERTENSION
     Route: 048

REACTIONS (1)
  - Platelet count abnormal [Unknown]
